FAERS Safety Report 5607325-2 (Version None)
Quarter: 2008Q1

REPORT INFORMATION
  Report Type: 
  Country: None (occurrence: None)
  Receive Date: 20080130
  Receipt Date: 20080123
  Transmission Date: 20080703
  Serious: Yes (Hospitalization)
  Sender: FDA-Public Use
  Company Number: US-JNJFOC-20080106401

PATIENT
  Sex: Female
  Weight: 69.4 kg

DRUGS (2)
  1. LEVAQUIN [Suspect]
     Indication: PNEUMONIA
     Route: 048
  2. KLONOPIN [Concomitant]
     Indication: DEPRESSION
     Route: 048

REACTIONS (2)
  - DEPRESSION [None]
  - PANIC ATTACK [None]
